FAERS Safety Report 9365171 (Version 1)
Quarter: 2013Q2

REPORT INFORMATION
  Report Type: Spontaneous
  Country: ES (occurrence: ES)
  Receive Date: 20130624
  Receipt Date: 20130624
  Transmission Date: 20140414
  Serious: Yes (Death, Other)
  Sender: FDA-Public Use
  Company Number: PHHY2013ES064015

PATIENT
  Age: 50 Year
  Sex: Male

DRUGS (8)
  1. EVEROLIMUS [Suspect]
     Indication: LIVER TRANSPLANT
     Dosage: UNK UKN, UNK
  2. TACROLIMUS [Suspect]
     Indication: LIVER TRANSPLANT
     Dosage: 6-9 NG/DL
  3. CELLCEPT [Suspect]
     Indication: LIVER TRANSPLANT
     Dosage: 1 G, Q12H
  4. RIBAVIRIN [Concomitant]
     Dosage: UNK UKN, UNK
  5. INTERFERON [Concomitant]
     Dosage: UNK UKN, UNK
  6. RED BLOOD CELLS [Concomitant]
     Dosage: 3 U, UNK
  7. PLASMA [Concomitant]
     Dosage: 1 U, UNK
  8. PLATELETS [Concomitant]
     Dosage: UNK

REACTIONS (6)
  - Hepatic failure [Fatal]
  - Jaundice [Fatal]
  - Asthenia [Fatal]
  - Malaise [Fatal]
  - Waist circumference increased [Fatal]
  - Liver transplant rejection [Fatal]
